FAERS Safety Report 8224593-1 (Version None)
Quarter: 2012Q1

REPORT INFORMATION
  Report Type: 
  Country: None (occurrence: None)
  Receive Date: 20120321
  Receipt Date: 20120315
  Transmission Date: 20120608
  Serious: Yes (Death, Other)
  Sender: FDA-Public Use
  Company Number: NL-CELGENEUS-114-21880-12031743

PATIENT
  Sex: Male

DRUGS (14)
  1. METFORMIN HCL [Concomitant]
     Dosage: 1500 MILLIGRAM
     Route: 065
  2. IPRATROPUIM [Concomitant]
     Dosage: 40 MILLIGRAM
     Route: 065
  3. REVLIMID [Suspect]
     Dosage: 10 MILLIGRAM
     Route: 048
     Dates: end: 20111201
  4. VIDAZA [Suspect]
     Route: 065
     Dates: start: 20111101, end: 20111201
  5. INSULIN [Concomitant]
     Dosage: 16-0-4 EH
     Route: 065
  6. ZOPICLONE [Concomitant]
     Dosage: 7.5 MILLIGRAM
     Route: 065
  7. VIDAZA [Suspect]
     Route: 065
  8. FINASTERIDE [Concomitant]
     Dosage: 5 MILLIGRAM
     Route: 065
  9. OMEPRAZOLE [Concomitant]
     Dosage: 80 MILLIGRAM
     Route: 065
  10. ALFUZOSIN HCL [Concomitant]
     Dosage: 10 MILLIGRAM
     Route: 065
  11. VIDAZA [Suspect]
     Route: 065
     Dates: start: 20090701
  12. VIDAZA [Suspect]
     Route: 065
  13. REVLIMID [Suspect]
     Dosage: 15 MILLIGRAM
     Route: 048
     Dates: start: 20110301
  14. REVLIMID [Suspect]
     Dosage: 5 MILLIGRAM
     Route: 048

REACTIONS (4)
  - METASTASES TO LIVER [None]
  - DEATH [None]
  - ACUTE MYELOID LEUKAEMIA [None]
  - PANCYTOPENIA [None]
